FAERS Safety Report 12114624 (Version 1)
Quarter: 2016Q1

REPORT INFORMATION
  Report Type: Spontaneous
  Country: RO (occurrence: RO)
  Receive Date: 20160225
  Receipt Date: 20160225
  Transmission Date: 20160526
  Serious: Yes (Other)
  Sender: FDA-Public Use
  Company Number: RO-PFIZER INC-2016100208

PATIENT
  Age: 62 Year
  Sex: Male

DRUGS (1)
  1. TEMSIROLIMUS [Suspect]
     Active Substance: TEMSIROLIMUS
     Indication: RENAL CANCER STAGE IV
     Dosage: 25 MG, WEEKLY
     Dates: start: 201111, end: 201212

REACTIONS (2)
  - Hepatotoxicity [Unknown]
  - Hepatitis B [Unknown]

NARRATIVE: CASE EVENT DATE: 2012
